FAERS Safety Report 9769031 (Version 1)
Quarter: 2013Q4

REPORT INFORMATION
  Report Type: Spontaneous
  Country: US (occurrence: None)
  Receive Date: 20131217
  Receipt Date: 20131217
  Transmission Date: 20140711
  Serious: Yes (Other)
  Sender: FDA-Public Use
  Company Number: None

PATIENT
  Age: 4 Year
  Sex: Male
  Weight: 16.96 kg

DRUGS (1)
  1. FOCALIN XR [Suspect]

REACTIONS (4)
  - Disturbance in attention [None]
  - Psychomotor hyperactivity [None]
  - Product substitution issue [None]
  - Drug ineffective [None]
